FAERS Safety Report 19469458 (Version 3)
Quarter: 2022Q3

REPORT INFORMATION
  Report Type: Spontaneous
  Country: JP (occurrence: JP)
  Receive Date: 20210628
  Receipt Date: 20220714
  Transmission Date: 20221026
  Serious: Yes (Other)
  Sender: FDA-Public Use
  Company Number: JP-GSKJP-JP2021JPN135732AA

PATIENT

DRUGS (9)
  1. LAMICTAL [Suspect]
     Active Substance: LAMOTRIGINE
     Indication: Epilepsy
     Dosage: 5 MG, QD
     Route: 048
     Dates: start: 20201002, end: 20201027
  2. LAMICTAL [Suspect]
     Active Substance: LAMOTRIGINE
     Dosage: 5 MG, QD
     Route: 048
     Dates: start: 20201120, end: 20201201
  3. PHENYTOIN SODIUM [Concomitant]
     Active Substance: PHENYTOIN SODIUM
     Dosage: 100 MG
  4. PHENOBAL POWDER [Concomitant]
     Dosage: 100 MG
  5. VALPROATE SODIUM [Concomitant]
     Active Substance: VALPROATE SODIUM
     Dosage: 400 MG
  6. MYSTAN [Concomitant]
     Active Substance: CLOBAZAM
     Dosage: 10 MG
  7. MYSTAN [Concomitant]
     Active Substance: CLOBAZAM
     Dosage: UNK
     Dates: start: 20201002
  8. LEVOCARNITINE [Concomitant]
     Active Substance: LEVOCARNITINE
     Dosage: UNK
  9. DIAZEPAM [Concomitant]
     Active Substance: DIAZEPAM
     Dosage: 10 MG

REACTIONS (9)
  - Epilepsy [Unknown]
  - Agitation [Recovering/Resolving]
  - Insomnia [Recovering/Resolving]
  - Aggression [Recovering/Resolving]
  - Pruritus [Recovering/Resolving]
  - Erythema [Recovering/Resolving]
  - Haemorrhage subcutaneous [Recovering/Resolving]
  - Blood blister [Recovering/Resolving]
  - Product use issue [Unknown]

NARRATIVE: CASE EVENT DATE: 20201002
